FAERS Safety Report 6703554-5 (Version None)
Quarter: 2010Q2

REPORT INFORMATION
  Report Type: 
  Country: None (occurrence: None)
  Receive Date: 20100430
  Receipt Date: 20100419
  Transmission Date: 20101027
  Serious: Yes (Other)
  Sender: FDA-Public Use
  Company Number: ZA-PFIZER INC-2010050776

PATIENT
  Sex: Male

DRUGS (1)
  1. DIFLUCAN [Suspect]
     Indication: CRYPTOCOCCOSIS
     Dosage: 12 MG/KG, UNK

REACTIONS (3)
  - DISEASE PROGRESSION [None]
  - DISSEMINATED CRYPTOCOCCOSIS [None]
  - DRUG INEFFECTIVE [None]
